FAERS Safety Report 23224378 (Version 1)
Quarter: 2023Q4

REPORT INFORMATION
  Report Type: Report from Study
  Country: US (occurrence: US)
  Receive Date: 20231124
  Receipt Date: 20231124
  Transmission Date: 20240110
  Serious: Yes (Other)
  Sender: FDA-Public Use
  Company Number: US-GILEAD-2023-0652121

PATIENT
  Sex: Female

DRUGS (11)
  1. AZTREONAM LYSINE [Suspect]
     Active Substance: AZTREONAM LYSINE
     Indication: Pseudomonas infection
     Dosage: 75 MG, TID, INHALE, FOR 28 DAYS ON AND 28 DAYS OF
     Route: 065
  2. CELEBREX [Concomitant]
     Active Substance: CELECOXIB
  3. ADVAIR HFA [Concomitant]
     Active Substance: FLUTICASONE PROPIONATE\SALMETEROL XINAFOATE
  4. LINZESS [Concomitant]
     Active Substance: LINACLOTIDE
  5. ALBUTEROL [Concomitant]
     Active Substance: ALBUTEROL
  6. LEVOTHYROXINE [Concomitant]
     Active Substance: LEVOTHYROXINE
  7. VITAMIN D3 [Concomitant]
     Active Substance: CHOLECALCIFEROL
  8. AZITHROMYCIN [Concomitant]
     Active Substance: AZITHROMYCIN
  9. GABAPENTIN [Concomitant]
     Active Substance: GABAPENTIN
  10. MIRENA [Concomitant]
     Active Substance: LEVONORGESTREL
  11. LUNESTA [Concomitant]
     Active Substance: ESZOPICLONE

REACTIONS (2)
  - Bipolar I disorder [Unknown]
  - Anxiety [Unknown]
